FAERS Safety Report 23236174 (Version 3)
Quarter: 2024Q1

REPORT INFORMATION
  Report Type: Report from Study
  Country: US (occurrence: US)
  Receive Date: 20231128
  Receipt Date: 20240215
  Transmission Date: 20240410
  Serious: No
  Sender: FDA-Public Use
  Company Number: US-002147023-NVSC2023US249251

PATIENT
  Age: 51 Year

DRUGS (1)
  1. KESIMPTA [Suspect]
     Active Substance: OFATUMUMAB
     Indication: Product used for unknown indication
     Dosage: UNK
     Route: 065
     Dates: start: 20231118

REACTIONS (8)
  - Nasopharyngitis [Unknown]
  - Pyrexia [Unknown]
  - Fatigue [Unknown]
  - Arthralgia [Unknown]
  - Injection site pruritus [Unknown]
  - Dry mouth [Unknown]
  - Dry eye [Unknown]
  - Headache [Unknown]

NARRATIVE: CASE EVENT DATE: 20240101
